FAERS Safety Report 10386647 (Version 1)
Quarter: 2014Q3

REPORT INFORMATION
  Report Type: Spontaneous
  Country: GR (occurrence: GR)
  Receive Date: 20140815
  Receipt Date: 20140815
  Transmission Date: 20150326
  Serious: Yes (Hospitalization, Other)
  Sender: FDA-Public Use
  Company Number: GR-ASTRAZENECA-2014SE58291

PATIENT
  Age: 67 Year
  Sex: Male
  Weight: 125 kg

DRUGS (4)
  1. BRILIQUE [Interacting]
     Active Substance: TICAGRELOR
     Indication: CORONARY ARTERY DISEASE
     Route: 048
     Dates: end: 20140616
  2. BRILIQUE [Suspect]
     Active Substance: TICAGRELOR
     Indication: CORONARY ARTERY DISEASE
     Route: 048
     Dates: start: 20140613
  3. ULTRAVIST [Interacting]
     Active Substance: IOPROMIDE
     Indication: ARTERIOGRAM CORONARY
     Dosage: 370 MG/ML, 200 ML UNKBOWN
     Route: 065
     Dates: start: 20140613, end: 20140613
  4. LASIX 20 MG/2 ML [Concomitant]
     Indication: CARDIAC FAILURE
     Dosage: 20 MG/2 ML, 40 MG 0.5/DAY
     Route: 042
     Dates: start: 20140613, end: 20140615

REACTIONS (2)
  - Drug interaction [Unknown]
  - Renal impairment [Recovered/Resolved]

NARRATIVE: CASE EVENT DATE: 20140613
